FAERS Safety Report 18700914 (Version 1)
Quarter: 2021Q1

REPORT INFORMATION
  Report Type: Spontaneous
  Country: US (occurrence: US)
  Receive Date: 20210104
  Receipt Date: 20210104
  Transmission Date: 20210419
  Serious: Yes (Life-Threatening, Disabling, Other)
  Sender: FDA-Public Use
  Company Number: None

PATIENT
  Age: 27 Year
  Sex: Male
  Weight: 62.1 kg

DRUGS (6)
  1. HYDROCHLOROTHIZIDE [Concomitant]
     Active Substance: HYDROCHLOROTHIAZIDE
  2. IBUPROFEN. [Suspect]
     Active Substance: IBUPROFEN
  3. TYLENOL [Suspect]
     Active Substance: ACETAMINOPHEN
     Indication: SKIN INJURY
     Dates: start: 20161117, end: 20170417
  4. LACTULOSE. [Concomitant]
     Active Substance: LACTULOSE
  5. PANTOPRAZOLE [Concomitant]
     Active Substance: PANTOPRAZOLE
  6. LINZESS [Concomitant]
     Active Substance: LINACLOTIDE

REACTIONS (1)
  - Haematochezia [None]

NARRATIVE: CASE EVENT DATE: 20201208
